FAERS Safety Report 23973561 (Version 1)
Quarter: 2024Q2

REPORT INFORMATION
  Report Type: Spontaneous
  Country: US (occurrence: None)
  Receive Date: 20240613
  Receipt Date: 20240613
  Transmission Date: 20240716
  Serious: No
  Sender: FDA-Public Use
  Company Number: US-MDD US Operations-MDD202401-000005

PATIENT
  Age: 67 Year
  Sex: Female
  Weight: 140 kg

DRUGS (15)
  1. APOKYN [Suspect]
     Active Substance: APOMORPHINE HYDROCHLORIDE
     Indication: Parkinson^s disease
     Dosage: STARTER DOSE AND TITRATE BY 0.1 ML EVERY FEW DAYS UP TO EFFECTIVE MAXIMUM RECOMMENDED DOSE OF 0.6 ML
     Route: 058
     Dates: start: 20231227
  2. ATENOLOL [Concomitant]
     Active Substance: ATENOLOL
  3. RYTARY [Concomitant]
     Active Substance: CARBIDOPA\LEVODOPA
     Dosage: EACH DF CONTAINS 48.75-195
  4. SINEMET [Concomitant]
     Active Substance: CARBIDOPA\LEVODOPA
     Dosage: NOT PROVIDED
  5. ELIQUIS [Concomitant]
     Active Substance: APIXABAN
  6. COLACE [Concomitant]
     Active Substance: DOCUSATE SODIUM
  7. Glucosamine/Chondroitin [Concomitant]
     Dosage: NOT PROVIDED
  8. B12 ACTIVE [Concomitant]
  9. VITAMIN D3 [Concomitant]
     Active Substance: CHOLECALCIFEROL
  10. FERROUS FUMARATE [Concomitant]
     Active Substance: FERROUS FUMARATE
     Dosage: 324(106) MG
  11. CALCIUM\VITAMIN D [Concomitant]
     Active Substance: CALCIUM\VITAMIN D
     Dosage: 600
  12. PROBIOTICS NOS [Concomitant]
     Active Substance: PROBIOTICS NOS
     Dosage: 2.5 B CELL
  13. DIETARY SUPPLEMENT [Concomitant]
     Active Substance: DIETARY SUPPLEMENT
     Dosage: 115 MG
  14. MIRAPEX [Concomitant]
     Active Substance: PRAMIPEXOLE DIHYDROCHLORIDE
  15. CARBIDOPA\LEVODOPA [Concomitant]
     Active Substance: CARBIDOPA\LEVODOPA
     Dosage: NOT PROVIDED

REACTIONS (7)
  - Flushing [Recovered/Resolved]
  - Nasopharyngitis [Recovered/Resolved]
  - Nasal congestion [Recovered/Resolved]
  - Hypertension [Recovered/Resolved]
  - Blood pressure increased [Unknown]
  - Panic attack [Recovered/Resolved]
  - Muscular weakness [Recovered/Resolved]

NARRATIVE: CASE EVENT DATE: 20231227
